FAERS Safety Report 16825835 (Version 1)
Quarter: 2019Q3

REPORT INFORMATION
  Report Type: Spontaneous
  Country: US (occurrence: US)
  Receive Date: 20190919
  Receipt Date: 20190919
  Transmission Date: 20191005
  Serious: No
  Sender: FDA-Public Use
  Company Number: US-GLENMARK PHARMACEUTICALS-2019GMK042482

PATIENT

DRUGS (1)
  1. TACROLIMUS. [Suspect]
     Active Substance: TACROLIMUS
     Indication: ECZEMA
     Dosage: UNK
     Route: 061
     Dates: start: 20190726

REACTIONS (6)
  - Application site pruritus [Recovered/Resolved]
  - Accidental exposure to product [Unknown]
  - Application site pain [Recovered/Resolved]
  - Sunburn [Recovered/Resolved]
  - Product use issue [Unknown]
  - Eyelid irritation [Recovered/Resolved]

NARRATIVE: CASE EVENT DATE: 20190726
